FAERS Safety Report 5587572-9 (Version None)
Quarter: 2008Q1

REPORT INFORMATION
  Report Type: 
  Country: None (occurrence: None)
  Receive Date: 20080108
  Receipt Date: 20071230
  Transmission Date: 20080703
  Serious: Yes (Other)
  Sender: FDA-Public Use
  Company Number: CHPA2007US14605

PATIENT
  Age: 70 Year
  Sex: Male

DRUGS (1)
  1. THERAFLU FLU AND SORE THROAT (NCH)(PARACETAMOL, DIPHENHYDRAMINE, PHENY [Suspect]
     Indication: INFLUENZA
     Dosage: 6 TSP, ONCE/SINGLE, ORAL
     Route: 048
     Dates: start: 20071226, end: 20071226

REACTIONS (1)
  - REFLUX OESOPHAGITIS [None]
